FAERS Safety Report 10672441 (Version 1)
Quarter: 2014Q4

REPORT INFORMATION
  Report Type: Spontaneous
  Country: US (occurrence: None)
  Receive Date: 20141222
  Receipt Date: 20141222
  Transmission Date: 20150529
  Serious: Yes (Hospitalization)
  Sender: FDA-Public Use
  Company Number: None

PATIENT
  Age: 41 Year
  Sex: Male

DRUGS (9)
  1. METOPROLOL ER [Concomitant]
     Active Substance: METOPROLOL SUCCINATE
  2. CLONIDINE. [Concomitant]
     Active Substance: CLONIDINE
  3. LISINOPRIL ??? [Concomitant]
  4. WARFARIN [Concomitant]
     Active Substance: WARFARIN
  5. OXYCODONE/APAP [Concomitant]
     Active Substance: ACETAMINOPHEN\OXYCODONE HYDROCHLORIDE
  6. MYCOPHENOLATE 250MG [Suspect]
     Active Substance: MYCOPHENOLIC ACID
     Indication: RENAL TRANSPLANT
     Dosage: 4 CAPSULES, BID, PO
     Route: 048
     Dates: start: 20141204
  7. TACROLIMUS 1 MG, 0.5 MG ACCORD [Suspect]
     Active Substance: TACROLIMUS
     Indication: RENAL TRANSPLANT
     Dosage: 4 CAPSULES, BID, PO
     Route: 048
     Dates: start: 20141204
  8. OMEPRAZOLE. [Concomitant]
     Active Substance: OMEPRAZOLE
  9. NIFEDIPINE ER [Concomitant]
     Active Substance: NIFEDIPINE

REACTIONS (2)
  - Thrombosis [None]
  - Dehydration [None]

NARRATIVE: CASE EVENT DATE: 20141215
